FAERS Safety Report 11273152 (Version 3)
Quarter: 2015Q3

REPORT INFORMATION
  Report Type: Report from Study
  Country: JP (occurrence: JP)
  Receive Date: 20150715
  Receipt Date: 20150827
  Transmission Date: 20151125
  Serious: Yes (Death)
  Sender: FDA-Public Use
  Company Number: JP-EISAI MEDICAL RESEARCH-EC-2015-008466

PATIENT
  Age: 56 Year
  Sex: Male
  Weight: 68 kg

DRUGS (7)
  1. LENVIMA [Suspect]
     Active Substance: LENVATINIB
     Indication: METASTASES TO BONE
     Route: 048
     Dates: start: 20150626, end: 20150708
  2. LENVIMA [Suspect]
     Active Substance: LENVATINIB
     Indication: FOLLICULAR THYROID CANCER
     Route: 048
     Dates: start: 20150523, end: 20150625
  3. LENVIMA [Suspect]
     Active Substance: LENVATINIB
     Indication: METASTASES TO SPINE
  4. LEVOTHYROXINE SODIUM HYDRATE [Concomitant]
  5. LENVIMA [Suspect]
     Active Substance: LENVATINIB
     Indication: METASTASES TO LIVER
  6. THYRADIN [Concomitant]
     Active Substance: LEVOTHYROXINE
  7. RANMARK [Concomitant]
     Active Substance: DENOSUMAB

REACTIONS (2)
  - Malignant neoplasm progression [Fatal]
  - Blood bilirubin increased [Fatal]

NARRATIVE: CASE EVENT DATE: 20150525
